FAERS Safety Report 5408172-7 (Version None)
Quarter: 2007Q3

REPORT INFORMATION
  Report Type: 
  Country: None (occurrence: None)
  Receive Date: 20070808
  Receipt Date: 20070802
  Transmission Date: 20080115
  Serious: Yes (Other)
  Sender: FDA-Public Use
  Company Number: PHEH2007US10710

PATIENT
  Age: 73 Year
  Sex: Female

DRUGS (2)
  1. DIOVAN [Suspect]
     Dosage: 160MG, QAM, 80MG QPM
  2. DYNACIRC [Concomitant]
     Dosage: UNK, UNK

REACTIONS (8)
  - AMNESIA [None]
  - COGNITIVE DISORDER [None]
  - DEPRESSION [None]
  - DIZZINESS [None]
  - HEADACHE [None]
  - PIGMENTATION DISORDER [None]
  - TEMPERATURE INTOLERANCE [None]
  - VARICOSE VEIN OPERATION [None]
